FAERS Safety Report 6610313-0 (Version None)
Quarter: 2010Q1

REPORT INFORMATION
  Report Type: 
  Country: None (occurrence: None)
  Receive Date: 20100302
  Receipt Date: 20100217
  Transmission Date: 20100710
  Serious: Yes (Other)
  Sender: FDA-Public Use
  Company Number: PHHY2010US09122

PATIENT
  Age: 86 Year
  Sex: Female

DRUGS (2)
  1. ZOLEDRONIC ACID [Suspect]
     Indication: BREAST CANCER METASTATIC
     Dosage: UNK
  2. CAPECITABINE [Concomitant]

REACTIONS (8)
  - BLOODY DISCHARGE [None]
  - EXCESSIVE GRANULATION TISSUE [None]
  - FISTULA [None]
  - MOUTH ULCERATION [None]
  - ORAL DISORDER [None]
  - OSTEONECROSIS [None]
  - RASH PAPULAR [None]
  - SINUS DISORDER [None]
